FAERS Safety Report 10574087 (Version 2)
Quarter: 2014Q4

REPORT INFORMATION
  Report Type: Spontaneous
  Country: US (occurrence: US)
  Receive Date: 20141110
  Receipt Date: 20141114
  Transmission Date: 20150529
  Serious: Yes (Death, Life-Threatening, Hospitalization, Other)
  Sender: FDA-Public Use
  Company Number: US-MERCK-1411USA003247

PATIENT
  Sex: Female
  Weight: 79.5 kg

DRUGS (1)
  1. JANUVIA [Suspect]
     Active Substance: SITAGLIPTIN PHOSPHATE
     Indication: TYPE 2 DIABETES MELLITUS
     Dosage: 100 MG, QD
     Route: 048
     Dates: start: 20070828, end: 20120219

REACTIONS (32)
  - Gallbladder disorder [Unknown]
  - Bronchiectasis [Unknown]
  - Dementia Alzheimer^s type [Unknown]
  - Metastases to adrenals [Unknown]
  - Hepatitis [Unknown]
  - Cholecystitis [Unknown]
  - Osteoarthritis [Unknown]
  - Abdominal pain upper [Unknown]
  - Pancreatic carcinoma [Unknown]
  - Hypertension [Unknown]
  - Hypomagnesaemia [Unknown]
  - Bile duct stent insertion [Unknown]
  - Abnormal loss of weight [Unknown]
  - Visual acuity reduced [Unknown]
  - Chronic obstructive pulmonary disease [Not Recovered/Not Resolved]
  - Cardiac pacemaker insertion [Unknown]
  - Cardiac failure acute [Unknown]
  - Hypoacusis [Unknown]
  - Pancreatitis [Unknown]
  - Stent placement [Unknown]
  - Gastrooesophageal reflux disease [Unknown]
  - Pyrexia [Unknown]
  - Hypertensive heart disease [Unknown]
  - Intervertebral disc degeneration [Unknown]
  - Death [Fatal]
  - Sepsis [Unknown]
  - Colitis [Unknown]
  - Electrolyte imbalance [Unknown]
  - Coronary artery disease [Unknown]
  - Sinus node dysfunction [Unknown]
  - Anaemia [Not Recovered/Not Resolved]
  - Hypothyroidism [Unknown]

NARRATIVE: CASE EVENT DATE: 2009
